FAERS Safety Report 20700559 (Version 3)
Quarter: 2022Q3

REPORT INFORMATION
  Report Type: Report from Study
  Country: US (occurrence: US)
  Receive Date: 20220412
  Receipt Date: 20220705
  Transmission Date: 20221027
  Serious: No
  Sender: FDA-Public Use
  Company Number: US-NOVARTISTESTPH-NVSC2022US081995

PATIENT
  Sex: Female

DRUGS (1)
  1. KESIMPTA [Suspect]
     Active Substance: OFATUMUMAB
     Indication: Product used for unknown indication
     Dosage: UNK
     Route: 065
     Dates: start: 20220404

REACTIONS (5)
  - Skin reaction [Unknown]
  - Burning sensation [Recovered/Resolved]
  - Urticaria [Unknown]
  - Rash [Recovered/Resolved]
  - Pruritus [Recovered/Resolved]
